FAERS Safety Report 6719247-4 (Version None)
Quarter: 2010Q2

REPORT INFORMATION
  Report Type: 
  Country: None (occurrence: None)
  Receive Date: 20100507
  Receipt Date: 20100430
  Transmission Date: 20101027
  Serious: No
  Sender: FDA-Public Use
  Company Number: 009918

PATIENT
  Weight: 81.6 kg

DRUGS (8)
  1. KEPPRA [Suspect]
     Indication: CONVULSION
     Dosage: 500 MG BID, ORAL, 500 MG QD
     Route: 048
     Dates: start: 20100201, end: 20100406
  2. KEPPRA [Suspect]
     Indication: CONVULSION
     Dosage: 500 MG BID, ORAL, 500 MG QD
     Route: 048
     Dates: start: 20100407
  3. KEPPRA [Suspect]
     Indication: CONVULSION
     Dosage: DOSE, BID, ORAL
     Route: 048
     Dates: start: 20090101, end: 20100201
  4. FENTANYL [Concomitant]
  5. TARCEVA [Concomitant]
  6. PAROXETINE HCL [Concomitant]
  7. LORAZEPAM [Concomitant]
  8. HYDROCODONE [Concomitant]

REACTIONS (3)
  - DRUG PRESCRIBING ERROR [None]
  - DRUG WITHDRAWAL CONVULSIONS [None]
  - INCORRECT DOSE ADMINISTERED [None]
